FAERS Safety Report 9113838 (Version 1)
Quarter: 2013Q1

REPORT INFORMATION
  Report Type: Spontaneous
  Country: GB (occurrence: GB)
  Receive Date: 20130208
  Receipt Date: 20130208
  Transmission Date: 20140127
  Serious: Yes (Other)
  Sender: FDA-Public Use
  Company Number: GB-PFIZER INC-2013052877

PATIENT
  Age: 23 Year
  Sex: Female

DRUGS (11)
  1. QUETIAPINE FUMARATE [Suspect]
     Indication: SCHIZOAFFECTIVE DISORDER
     Dosage: UNK
  2. OLANZAPINE [Suspect]
     Indication: SCHIZOAFFECTIVE DISORDER
     Dosage: UNK
  3. OLANZAPINE [Suspect]
     Dosage: UNK
     Route: 065
  4. RISPERIDONE [Suspect]
     Indication: SCHIZOAFFECTIVE DISORDER
     Dosage: UNK
  5. HALOPERIDOL [Suspect]
     Indication: SCHIZOAFFECTIVE DISORDER
     Dosage: UNK
  6. HALOPERIDOL [Suspect]
     Dosage: UNK
     Route: 065
  7. AMISULPRIDE [Suspect]
     Indication: SCHIZOAFFECTIVE DISORDER
     Dosage: UNK
  8. AMISULPRIDE [Suspect]
     Dosage: 200 MG, 2X/DAY
     Route: 065
  9. VALPROATE SODIUM [Suspect]
     Indication: SCHIZOAFFECTIVE DISORDER
     Dosage: UNK
  10. CLOZAPINE [Suspect]
     Indication: SCHIZOAFFECTIVE DISORDER
     Dosage: (137.5 MG,1 D)
  11. FLUPENTIXOL DECANOATE [Suspect]
     Dosage: INJECTIONS (1 IN 2 WK)

REACTIONS (3)
  - Drug ineffective [Recovered/Resolved]
  - Adverse drug reaction [Recovered/Resolved]
  - Neutropenia [Recovered/Resolved]
